FAERS Safety Report 20110692 (Version 1)
Quarter: 2021Q4

REPORT INFORMATION
  Report Type: Spontaneous
  Country: FR (occurrence: FR)
  Receive Date: 20211124
  Receipt Date: 20211124
  Transmission Date: 20220303
  Serious: Yes (Hospitalization)
  Sender: FDA-Public Use
  Company Number: None

PATIENT
  Age: 52 Year
  Sex: Female

DRUGS (2)
  1. POSACONAZOLE [Suspect]
     Active Substance: POSACONAZOLE
     Indication: Infection
     Dosage: UNK
     Dates: start: 20210901, end: 20211028
  2. PROGRAF [Concomitant]
     Active Substance: TACROLIMUS
     Indication: Infection
     Dosage: UNK
     Route: 048

REACTIONS (2)
  - Metabolic acidosis [Recovered/Resolved]
  - Tubulointerstitial nephritis [Recovered/Resolved]

NARRATIVE: CASE EVENT DATE: 20211027
